FAERS Safety Report 17924081 (Version 1)
Quarter: 2020Q2

REPORT INFORMATION
  Report Type: Spontaneous
  Country: FR (occurrence: FR)
  Receive Date: 20200622
  Receipt Date: 20200622
  Transmission Date: 20200714
  Serious: Yes (Death)
  Sender: FDA-Public Use
  Company Number: FR-BAYER-2020-120602

PATIENT
  Age: 11 Year
  Sex: Female
  Weight: 80 kg

DRUGS (3)
  1. ULTRAVIST [Suspect]
     Active Substance: IOPROMIDE
     Indication: COMPUTERISED TOMOGRAM
     Route: 048
     Dates: start: 20200525, end: 20200525
  2. PHLOROGLUCINOL/TRIMETHYLPHLOROGLUCINOL ARROW [Concomitant]
     Active Substance: PHLOROGLUCINOL\1,3,5-TRIMETHOXYBENZENE
     Indication: ABDOMINAL PAIN UPPER
     Dosage: NON ADMINISTR?
  3. ADRENALINE AGUETTANT [Suspect]
     Active Substance: EPINEPHRINE
     Indication: PRODUCT ADMINISTRATION ERROR
     Route: 042
     Dates: start: 20200525, end: 20200525

REACTIONS (5)
  - Product appearance confusion [Fatal]
  - Multiple organ dysfunction syndrome [Fatal]
  - Cardio-respiratory arrest [Fatal]
  - Product confusion [Fatal]
  - Product administration error [Fatal]

NARRATIVE: CASE EVENT DATE: 20200525
